FAERS Safety Report 19231618 (Version 1)
Quarter: 2021Q2

REPORT INFORMATION
  Report Type: Spontaneous
  Country: US (occurrence: US)
  Receive Date: 20210507
  Receipt Date: 20210507
  Transmission Date: 20210717
  Serious: Yes (Hospitalization, Other)
  Sender: FDA-Public Use
  Company Number: US-BAYER-2021-134193

PATIENT
  Age: 56 Year
  Sex: Male

DRUGS (2)
  1. COUMADIN [Suspect]
     Active Substance: WARFARIN SODIUM
     Dosage: UNK
     Dates: end: 2021
  2. ADEMPAS [Suspect]
     Active Substance: RIOCIGUAT
     Indication: PULMONARY HYPERTENSION
     Dosage: 2.5 MG, TID
     Route: 048
     Dates: start: 20140401

REACTIONS (7)
  - Anticoagulant therapy [None]
  - Dyspnoea [None]
  - Oxygen saturation decreased [None]
  - Chronic respiratory failure [None]
  - Epistaxis [None]
  - Anaemia [None]
  - Hypoxia [None]

NARRATIVE: CASE EVENT DATE: 202104
